FAERS Safety Report 9645750 (Version 3)
Quarter: 2013Q4

REPORT INFORMATION
  Report Type: Spontaneous
  Country: IE (occurrence: IE)
  Receive Date: 20131025
  Receipt Date: 20131226
  Transmission Date: 20140711
  Serious: Yes (Other)
  Sender: FDA-Public Use
  Company Number: IE-JNJFOC-20131009531

PATIENT
  Age: 30 Year
  Sex: Female

DRUGS (3)
  1. RISPERDAL [Suspect]
     Indication: PSYCHOTIC DISORDER
     Route: 048
     Dates: start: 20131209
  2. RISPERDAL [Suspect]
     Indication: PSYCHOTIC DISORDER
     Dosage: FOR LAST 10 WEEKS
     Route: 048
     Dates: start: 20130720
  3. PROZAC [Suspect]
     Indication: DEPRESSED MOOD
     Dosage: FOUR WEEKS
     Route: 065
     Dates: start: 20130818

REACTIONS (1)
  - Autoimmune thyroiditis [Recovering/Resolving]
